FAERS Safety Report 6933358-X (Version None)
Quarter: 2010Q3

REPORT INFORMATION
  Report Type: 
  Country: None (occurrence: None)
  Receive Date: 20100820
  Receipt Date: 20100806
  Transmission Date: 20110219
  Serious: Yes (Death)
  Sender: FDA-Public Use
  Company Number: US-EISAI INC.-E7272-00073-SPO-US

PATIENT
  Age: 22 Year
  Sex: Male

DRUGS (9)
  1. ONTAK [Suspect]
     Indication: HEPATOSPLENIC T-CELL LYMPHOMA
     Dosage: UNKNOWN
     Route: 041
     Dates: start: 20060101
  2. CYCLOPHOSPHAMIDE [Concomitant]
     Indication: HEPATOSPLENIC T-CELL LYMPHOMA
     Dates: start: 20060101
  3. DOXORUBICIN HCL [Concomitant]
     Indication: HEPATOSPLENIC T-CELL LYMPHOMA
     Dates: start: 20060101
  4. ONCOVIN [Concomitant]
     Indication: HEPATOSPLENIC T-CELL LYMPHOMA
     Dosage: UNKNOWN
     Dates: start: 20060101
  5. PREDNISONE [Concomitant]
     Indication: HEPATOSPLENIC T-CELL LYMPHOMA
     Dates: start: 20060101
  6. ETOPOSIDE [Concomitant]
     Dates: start: 20060101
  7. METHYLPREDNISOLONE [Concomitant]
     Dates: start: 20060101
  8. CISPLATIN [Concomitant]
     Dates: start: 20060101
  9. CYTARABINE [Concomitant]
     Dates: start: 20060101

REACTIONS (1)
  - DEATH [None]
